FAERS Safety Report 6160923-2 (Version None)
Quarter: 2009Q2

REPORT INFORMATION
  Report Type: 
  Country: None (occurrence: None)
  Receive Date: 20090420
  Receipt Date: 20090420
  Transmission Date: 20091009
  Serious: Yes (Hospitalization)
  Sender: FDA-Public Use
  Company Number: PHHO2007US09055

PATIENT
  Sex: Female
  Weight: 95 kg

DRUGS (12)
  1. CIBADREX T29368+ [Suspect]
     Indication: HYPERTENSION
     Dosage: LEVEL 1
     Route: 048
     Dates: start: 20040506
  2. CIBADREX T29368+ [Suspect]
     Dosage: LEVEL 2
     Route: 048
     Dates: start: 20061122
  3. AMBIEN [Concomitant]
     Indication: INSOMNIA
  4. MORPHINE [Concomitant]
     Indication: PAIN
  5. ENABLEX [Concomitant]
  6. VYTORIN [Concomitant]
     Indication: HYPERLIPIDAEMIA
  7. ZOLOFT [Concomitant]
  8. LORTAB [Concomitant]
     Indication: PAIN
  9. LANTUS [Concomitant]
     Indication: TYPE 2 DIABETES MELLITUS
  10. ACTONEL [Concomitant]
  11. NASONEX [Concomitant]
  12. BIAXIN [Concomitant]
     Indication: COUGH

REACTIONS (10)
  - ATELECTASIS [None]
  - BACK PAIN [None]
  - CHEST X-RAY ABNORMAL [None]
  - COMPRESSION FRACTURE [None]
  - COUGH [None]
  - FALL [None]
  - ORTHOSTATIC HYPOTENSION [None]
  - PYREXIA [None]
  - URINARY TRACT INFECTION [None]
  - VERTEBROPLASTY [None]
